FAERS Safety Report 16453633 (Version 2)
Quarter: 2019Q3

REPORT INFORMATION
  Report Type: Spontaneous
  Country: NO (occurrence: NO)
  Receive Date: 20190619
  Receipt Date: 20190701
  Transmission Date: 20191004
  Serious: Yes (Other)
  Sender: FDA-Public Use
  Company Number: PHHY2019NO138426

PATIENT
  Sex: Male

DRUGS (1)
  1. ENTRESTO [Suspect]
     Active Substance: SACUBITRIL\VALSARTAN
     Indication: CARDIAC FAILURE
     Dosage: UNK
     Route: 065

REACTIONS (8)
  - Asthenia [Unknown]
  - Fatigue [Unknown]
  - Confusional state [Unknown]
  - Syncope [Unknown]
  - Brain hypoxia [Unknown]
  - Cerebral ischaemia [Unknown]
  - Ill-defined disorder [Unknown]
  - Feeling abnormal [Unknown]
